FAERS Safety Report 6091954-9 (Version None)
Quarter: 2009Q1

REPORT INFORMATION
  Report Type: 
  Country: None (occurrence: None)
  Receive Date: 20090225
  Receipt Date: 20081028
  Transmission Date: 20090719
  Serious: No
  Sender: FDA-Public Use
  Company Number: A0753891A

PATIENT
  Age: 44 Year
  Sex: Female

DRUGS (1)
  1. VALTREX [Suspect]
     Indication: HERPES ZOSTER
     Dosage: 1G SINGLE DOSE
     Route: 048
     Dates: start: 20081001, end: 20081001

REACTIONS (1)
  - RASH [None]
